FAERS Safety Report 25245913 (Version 6)
Quarter: 2025Q3

REPORT INFORMATION
  Report Type: Spontaneous
  Country: US (occurrence: US)
  Receive Date: 20250428
  Receipt Date: 20250705
  Transmission Date: 20251020
  Serious: No
  Sender: TRAVERE THERAPEUTICS
  Company Number: US-TRAVERE-2025TVT00316

PATIENT
  Age: 31 Year
  Sex: Female

DRUGS (3)
  1. FILSPARI [Suspect]
     Active Substance: SPARSENTAN
     Indication: IgA nephropathy
     Dosage: FOR 14 DAYS
     Route: 048
     Dates: start: 202502
  2. FILSPARI [Suspect]
     Active Substance: SPARSENTAN
     Route: 048
     Dates: start: 20250311
  3. FILSPARI [Suspect]
     Active Substance: SPARSENTAN
     Route: 048
     Dates: start: 20250304, end: 20250310

REACTIONS (8)
  - Dizziness [None]
  - Nasopharyngitis [Unknown]
  - Glomerular filtration rate decreased [Unknown]
  - Motion sickness [Unknown]
  - Hypertension [None]
  - Contusion [None]
  - Malaise [Unknown]
  - Blood urine present [Unknown]

NARRATIVE: CASE EVENT DATE: 20250301
